FAERS Safety Report 9143497 (Version 1)
Quarter: 2013Q1

REPORT INFORMATION
  Report Type: Spontaneous
  Country: US (occurrence: US)
  Receive Date: 20130306
  Receipt Date: 20130306
  Transmission Date: 20140127
  Serious: Yes (Hospitalization, Other)
  Sender: FDA-Public Use
  Company Number: US-SANOFI-AVENTIS-2013SA021665

PATIENT
  Sex: Female

DRUGS (1)
  1. PLAVIX [Suspect]
     Dosage: LOADING DOSE 300 MG
     Dates: start: 201203

REACTIONS (4)
  - Cardiovascular disorder [Unknown]
  - Hypoaesthesia oral [Unknown]
  - Myocardial infarction [Unknown]
  - Cerebrovascular accident [Unknown]
